FAERS Safety Report 15498409 (Version 1)
Quarter: 2018Q4

REPORT INFORMATION
  Report Type: Spontaneous
  Country: US (occurrence: US)
  Receive Date: 20181015
  Receipt Date: 20181015
  Transmission Date: 20190205
  Serious: Yes (Other)
  Sender: FDA-Public Use
  Company Number: US-ROCHE-2196782

PATIENT
  Sex: Female
  Weight: 79.45 kg

DRUGS (2)
  1. RITUXAN [Suspect]
     Active Substance: RITUXIMAB
     Dosage: ONGOING:YES
     Route: 065
     Dates: start: 2017
  2. RITUXAN [Suspect]
     Active Substance: RITUXIMAB
     Indication: VASCULITIS
     Dosage: ONGOING: NO
     Route: 065
     Dates: start: 201002, end: 201210

REACTIONS (5)
  - Intentional product use issue [Unknown]
  - Colitis ulcerative [Unknown]
  - Vasculitis [Recovered/Resolved]
  - Therapeutic response shortened [Recovered/Resolved]
  - Off label use [Unknown]

NARRATIVE: CASE EVENT DATE: 2012
